FAERS Safety Report 4426709-1 (Version None)
Quarter: 2004Q3

REPORT INFORMATION
  Report Type: 
  Country: None (occurrence: None)
  Receive Date: 20040811
  Receipt Date: 20040722
  Transmission Date: 20050211
  Serious: Yes (Other)
  Sender: FDA-Public Use
  Company Number: USA040773408

PATIENT
  Age: 33 Year
  Sex: Female
  Weight: 64 kg

DRUGS (2)
  1. PROZAC WEEKLY [Suspect]
     Dosage: 90 MG
     Route: 048
  2. PROZAC [Suspect]
     Dosage: 20 MG
     Route: 048
     Dates: start: 20010101

REACTIONS (7)
  - AMENORRHOEA [None]
  - ASTHENIA [None]
  - BLOOD GROWTH HORMONE DECREASED [None]
  - BLOOD PROLACTIN INCREASED [None]
  - FATIGUE [None]
  - HYPERSOMNIA [None]
  - IRRITABILITY [None]
